FAERS Safety Report 12938272 (Version 1)
Quarter: 2016Q4

REPORT INFORMATION
  Report Type: Spontaneous
  Country: US (occurrence: US)
  Receive Date: 20161114
  Receipt Date: 20161114
  Transmission Date: 20170207
  Serious: No
  Sender: FDA-Public Use
  Company Number: None

PATIENT
  Age: 32 Year
  Sex: Male
  Weight: 108.86 kg

DRUGS (1)
  1. HARVONI [Suspect]
     Active Substance: LEDIPASVIR\SOFOSBUVIR
     Dosage: HARVONI 90-400MG - PO- QD
     Route: 048
     Dates: start: 20160920

REACTIONS (3)
  - Fatigue [None]
  - Headache [None]
  - Drug screen false positive [None]

NARRATIVE: CASE EVENT DATE: 20161001
